FAERS Safety Report 7056562-1 (Version None)
Quarter: 2010Q4

REPORT INFORMATION
  Report Type: 
  Country: None (occurrence: None)
  Receive Date: 20101018
  Receipt Date: 20101008
  Transmission Date: 20110411
  Serious: Yes (Death, Other)
  Sender: FDA-Public Use
  Company Number: 722039

PATIENT
  Age: 63 Year
  Sex: Female

DRUGS (4)
  1. PAMIDRONIC ACID [Suspect]
     Indication: METASTASES TO BONE
     Dosage: INTRAVENOUS (NOT SPECIFIED)
     Route: 042
     Dates: start: 20010101, end: 20080101
  2. ZOMETA [Suspect]
     Indication: METASTASES TO BONE
     Dosage: INTRAVENOUS (NOT SPECIFIED)
     Route: 042
     Dates: start: 20080101
  3. ALENDRONIC ACID [Concomitant]
  4. MS CONTIN [Concomitant]

REACTIONS (2)
  - IMPAIRED HEALING [None]
  - OSTEONECROSIS OF JAW [None]
